FAERS Safety Report 10110557 (Version 1)
Quarter: 2014Q2

REPORT INFORMATION
  Report Type: Spontaneous
  Country: NO (occurrence: NO)
  Receive Date: 20140425
  Receipt Date: 20140425
  Transmission Date: 20141212
  Serious: Yes (Death, Other)
  Sender: FDA-Public Use
  Company Number: NO-SA-2014SA048173

PATIENT
  Age: 74 Year
  Sex: Male
  Weight: 79 kg

DRUGS (14)
  1. KEPPRA [Concomitant]
     Dates: start: 20140327, end: 20140328
  2. METFORMIN [Concomitant]
     Dates: end: 20140328
  3. METOPROLOL [Concomitant]
     Dosage: DEPOT TABLET
     Route: 048
     Dates: end: 20140328
  4. NEXIUM [Concomitant]
     Dates: end: 20140328
  5. METRONIDAZOLE [Concomitant]
     Dates: start: 20140328, end: 20140328
  6. AMLODIPINE [Concomitant]
     Dates: end: 20140328
  7. PLAVIX [Suspect]
     Indication: THROMBOSIS PROPHYLAXIS
     Dosage: BOLUS DOSE
     Route: 048
     Dates: start: 20140324, end: 20140324
  8. PLAVIX [Suspect]
     Indication: THROMBOSIS PROPHYLAXIS
     Dosage: BOLUS DOSE 300 MG, FOLLOWED BY 75 MG X 1
     Route: 048
     Dates: start: 20140324, end: 20140327
  9. BRILIQUE [Suspect]
     Indication: THROMBOSIS PROPHYLAXIS
     Route: 048
     Dates: start: 20140316, end: 20140320
  10. ALBYL-E [Concomitant]
     Indication: THROMBOSIS PROPHYLAXIS
     Route: 048
     Dates: start: 20140316, end: 20140327
  11. ATACAND PLUS /GFR/ [Concomitant]
     Dosage: 16/12,5 MG X 2
     Dates: end: 20140328
  12. GLIBENCLAMIDE [Concomitant]
     Dates: end: 20140328
  13. SIMVASTATIN [Concomitant]
     Dates: end: 20140328
  14. BENZYLPENICILLIN [Concomitant]
     Dates: start: 20140328, end: 20140328

REACTIONS (3)
  - Disseminated intravascular coagulation [Fatal]
  - Cerebral haemorrhage [Fatal]
  - Thrombotic cerebral infarction [Not Recovered/Not Resolved]
